FAERS Safety Report 5957805-5 (Version None)
Quarter: 2008Q4

REPORT INFORMATION
  Report Type: 
  Country: None (occurrence: None)
  Receive Date: 20081119
  Receipt Date: 20081110
  Transmission Date: 20090506
  Serious: Yes (Death)
  Sender: FDA-Public Use
  Company Number: FR-ABBOTT-08P-056-0486058-00

PATIENT
  Age: 32 Year
  Sex: Female

DRUGS (3)
  1. SIBUTRAMINE [Suspect]
     Indication: WEIGHT CONTROL
     Route: 048
  2. PHENOLPHTHALEIN [Suspect]
     Indication: WEIGHT CONTROL
     Route: 048
  3. PLANT DERIVED SUBSTANCES WITH LAXATIVE PROPERTIES [Suspect]
     Indication: WEIGHT CONTROL
     Route: 048

REACTIONS (1)
  - PULMONARY EMBOLISM [None]
